FAERS Safety Report 10314385 (Version 1)
Quarter: 2014Q3

REPORT INFORMATION
  Report Type: Spontaneous
  Country: US (occurrence: US)
  Receive Date: 20140718
  Receipt Date: 20140718
  Transmission Date: 20150326
  Serious: Yes (Other)
  Sender: FDA-Public Use
  Company Number: US-ASTRAZENECA-2014SE50955

PATIENT
  Age: 55 Year
  Sex: Male

DRUGS (1)
  1. ZESTRIL [Suspect]
     Active Substance: LISINOPRIL
     Indication: HYPERTENSION
     Route: 048
     Dates: start: 20131218, end: 201407

REACTIONS (4)
  - Injection site bruising [Unknown]
  - Platelet count decreased [Unknown]
  - Panic reaction [Unknown]
  - Cough [Unknown]

NARRATIVE: CASE EVENT DATE: 20140430
